FAERS Safety Report 13949948 (Version 1)
Quarter: 2017Q3

REPORT INFORMATION
  Report Type: Spontaneous
  Country: US (occurrence: US)
  Receive Date: 20170908
  Receipt Date: 20170908
  Transmission Date: 20171128
  Serious: No
  Sender: FDA-Public Use
  Company Number: US-ROCHE-1135812

PATIENT
  Sex: Female

DRUGS (8)
  1. CHLORAMBUCIL [Concomitant]
     Active Substance: CHLORAMBUCIL
  2. RITUXAN [Suspect]
     Active Substance: RITUXIMAB
     Route: 065
     Dates: start: 20010208
  3. RITUXAN [Suspect]
     Active Substance: RITUXIMAB
     Route: 065
     Dates: start: 20010222
  4. RITUXAN [Suspect]
     Active Substance: RITUXIMAB
     Route: 065
     Dates: start: 20010215
  5. RITUXAN [Suspect]
     Active Substance: RITUXIMAB
     Route: 065
     Dates: start: 20010801
  6. RITUXAN [Suspect]
     Active Substance: RITUXIMAB
     Route: 065
     Dates: start: 20010201
  7. RITUXAN [Suspect]
     Active Substance: RITUXIMAB
     Indication: WALDENSTROM^S MACROGLOBULINAEMIA
     Route: 065
     Dates: start: 20000721
  8. PREDNISOLONE. [Concomitant]
     Active Substance: PREDNISOLONE

REACTIONS (5)
  - Fatigue [Unknown]
  - Sinusitis [Unknown]
  - Lower respiratory tract congestion [Unknown]
  - Pain [Unknown]
  - Pyrexia [Unknown]
